FAERS Safety Report 20359093 (Version 2)
Quarter: 2022Q3

REPORT INFORMATION
  Report Type: Spontaneous
  Country: US (occurrence: US)
  Receive Date: 20220120
  Receipt Date: 20220927
  Transmission Date: 20221027
  Serious: Yes (Other)
  Sender: FDA-Public Use
  Company Number: US-GILEAD-2022-0565674

PATIENT
  Sex: Male
  Weight: 104.31 kg

DRUGS (33)
  1. TRUVADA [Suspect]
     Active Substance: EMTRICITABINE\TENOFOVIR DISOPROXIL FUMARATE
     Indication: HIV infection
     Dosage: UNK
     Route: 048
     Dates: start: 2009, end: 201610
  2. TRUVADA [Suspect]
     Active Substance: EMTRICITABINE\TENOFOVIR DISOPROXIL FUMARATE
     Dosage: UNK
     Route: 065
     Dates: start: 2008, end: 201610
  3. BIKTARVY [Concomitant]
     Active Substance: BICTEGRAVIR SODIUM\EMTRICITABINE\TENOFOVIR ALAFENAMIDE FUMARATE
  4. DESCOVY [Concomitant]
     Active Substance: EMTRICITABINE\TENOFOVIR ALAFENAMIDE FUMARATE
  5. TIVICAY [Concomitant]
     Active Substance: DOLUTEGRAVIR SODIUM
  6. VIRAMUNE [Concomitant]
     Active Substance: NEVIRAPINE
  7. ACETAMINOPHEN AND CODEINE [Concomitant]
     Active Substance: ACETAMINOPHEN\CODEINE PHOSPHATE
  8. ALBUTEROL [Concomitant]
     Active Substance: ALBUTEROL
  9. ALPRAZOLAM [Concomitant]
     Active Substance: ALPRAZOLAM
  10. AMLODIPINE [Concomitant]
     Active Substance: AMLODIPINE BESYLATE
  11. ANDRODERM [Concomitant]
     Active Substance: TESTOSTERONE
  12. BREO ELLIPTA [Concomitant]
     Active Substance: FLUTICASONE FUROATE\VILANTEROL TRIFENATATE
  13. DICLOFENAC 0.1% DUTRIEC [Concomitant]
  14. DOCUSATE [Concomitant]
     Active Substance: DOCUSATE
  15. COLACE [Concomitant]
     Active Substance: DOCUSATE SODIUM
  16. DONEPEZIL [Concomitant]
     Active Substance: DONEPEZIL
  17. ENDOCET [Concomitant]
     Active Substance: ACETAMINOPHEN\OXYCODONE HYDROCHLORIDE
  18. ESCITALOPRAM [Concomitant]
     Active Substance: ESCITALOPRAM OXALATE
  19. FERROUS SULFATE [Concomitant]
     Active Substance: FERROUS SULFATE
  20. FUROSEMIDE [Concomitant]
     Active Substance: FUROSEMIDE
  21. HYDROCHLOROTHIAZIDE [Concomitant]
     Active Substance: HYDROCHLOROTHIAZIDE
  22. IPRATROPIUM BROMIDE [Concomitant]
     Active Substance: IPRATROPIUM BROMIDE
  23. LIDOCAINE 5% EXTRA [Concomitant]
  24. LOSARTAN AND HYDROCHLOROTHIAZIDE [Concomitant]
     Active Substance: HYDROCHLOROTHIAZIDE\LOSARTAN POTASSIUM
  25. ASPIRIN [Concomitant]
     Active Substance: ASPIRIN
  26. METOPROLOL [Concomitant]
     Active Substance: METOPROLOL
  27. MONTELUKAST [Concomitant]
     Active Substance: MONTELUKAST SODIUM
  28. NICODERM CQ [Concomitant]
     Active Substance: NICOTINE
  29. OMEPRAZOLE [Concomitant]
     Active Substance: OMEPRAZOLE
  30. OXYCODONE [Concomitant]
     Active Substance: OXYCODONE
  31. SENEXON [SENNA SPP.] [Concomitant]
  32. SPIRIVA [Concomitant]
     Active Substance: TIOTROPIUM BROMIDE MONOHYDRATE
  33. VENTOLIN HFA [Concomitant]
     Active Substance: ALBUTEROL SULFATE

REACTIONS (10)
  - Osteoporosis [Not Recovered/Not Resolved]
  - Bone demineralisation [Unknown]
  - Pain [Not Recovered/Not Resolved]
  - Emotional distress [Not Recovered/Not Resolved]
  - Anxiety [Not Recovered/Not Resolved]
  - Anhedonia [Not Recovered/Not Resolved]
  - Arthralgia [Not Recovered/Not Resolved]
  - Back pain [Not Recovered/Not Resolved]
  - Gait disturbance [Not Recovered/Not Resolved]
  - Proteinuria [Unknown]

NARRATIVE: CASE EVENT DATE: 20180101
